FAERS Safety Report 7815701-2 (Version None)
Quarter: 2011Q4

REPORT INFORMATION
  Report Type: 
  Country: None (occurrence: None)
  Receive Date: 20111014
  Receipt Date: 20111011
  Transmission Date: 20120403
  Serious: Yes (Other)
  Sender: FDA-Public Use
  Company Number: CA-NAPPMUNDI-CAN-2011-0002267

PATIENT
  Age: 32 Year
  Sex: Male

DRUGS (6)
  1. OXYCONTIN [Suspect]
     Indication: PAIN
     Route: 065
  2. DILAUDID [Suspect]
     Indication: PAIN
     Route: 065
  3. HYDROMORPHONE HCL [Suspect]
     Indication: PAIN
     Route: 065
  4. OXYCONTIN [Suspect]
     Indication: PRODUCT USED FOR UNKNOWN INDICATION
  5. DILAUDID [Suspect]
     Indication: PRODUCT USED FOR UNKNOWN INDICATION
  6. HYDROMORPHONE HCL [Suspect]
     Indication: PRODUCT USED FOR UNKNOWN INDICATION

REACTIONS (4)
  - AGGRESSION [None]
  - SELF-MEDICATION [None]
  - IMPAIRED DRIVING ABILITY [None]
  - SUBSTANCE ABUSE [None]
